FAERS Safety Report 17098994 (Version 2)
Quarter: 2019Q4

REPORT INFORMATION
  Report Type: Spontaneous
  Country: CZ (occurrence: CZ)
  Receive Date: 20191202
  Receipt Date: 20191226
  Transmission Date: 20200122
  Serious: Yes (Life-Threatening, Disabling, Other)
  Sender: FDA-Public Use
  Company Number: CZ-ROCHE-2480186

PATIENT
  Age: 53 Year
  Sex: Male

DRUGS (4)
  1. CYCLOSPORINE. [Suspect]
     Active Substance: CYCLOSPORINE
     Indication: PRODUCT USED FOR UNKNOWN INDICATION
     Route: 065
  2. FOSCAVIR [Suspect]
     Active Substance: FOSCARNET SODIUM
     Indication: CYTOMEGALOVIRUS INFECTION
     Route: 065
  3. CIDOFOVIR. [Suspect]
     Active Substance: CIDOFOVIR
     Indication: CYTOMEGALOVIRUS INFECTION
     Route: 065
  4. VALGANCICLOVIR. [Suspect]
     Active Substance: VALGANCICLOVIR
     Indication: CYTOMEGALOVIRUS INFECTION
     Route: 065

REACTIONS (7)
  - Cytomegalovirus infection [Unknown]
  - Drug ineffective [Unknown]
  - Drug resistance [Unknown]
  - Renal failure [Unknown]
  - Pneumonitis [Unknown]
  - Cytomegalovirus colitis [Recovered/Resolved]
  - Pneumonia cytomegaloviral [Recovered/Resolved]
